FAERS Safety Report 6376703-9 (Version None)
Quarter: 2009Q3

REPORT INFORMATION
  Report Type: 
  Country: None (occurrence: None)
  Receive Date: 20090924
  Receipt Date: 20090924
  Transmission Date: 20100115
  Serious: Yes (Other)
  Sender: FDA-Public Use
  Company Number: None

PATIENT
  Sex: Female
  Weight: 49.8957 kg

DRUGS (1)
  1. TRI-LUMA [Suspect]
     Indication: SKIN DISCOLOURATION
     Dosage: THIN FILM ONCE DAILY SKIN
     Route: 061
     Dates: start: 20090601, end: 20090801

REACTIONS (2)
  - CONDITION AGGRAVATED [None]
  - SKIN DISCOLOURATION [None]
